FAERS Safety Report 6795747-6 (Version None)
Quarter: 2010Q2

REPORT INFORMATION
  Report Type: 
  Country: None (occurrence: None)
  Receive Date: 20100625
  Receipt Date: 20100623
  Transmission Date: 20101027
  Serious: Yes (Other)
  Sender: FDA-Public Use
  Company Number: FR-BRISTOL-MYERS SQUIBB COMPANY-15124910

PATIENT
  Age: 61 Year
  Sex: Male
  Weight: 60 kg

DRUGS (10)
  1. HYDREA [Suspect]
     Indication: CHRONIC MYELOID LEUKAEMIA
     Dosage: RECEIVED FOR ATLEAST 6 YEARS.
     Route: 048
     Dates: start: 19950101
  2. HYDREA [Suspect]
     Indication: POLYCYTHAEMIA
     Dosage: RECEIVED FOR ATLEAST 6 YEARS.
     Route: 048
     Dates: start: 19950101
  3. PURINETHOL [Concomitant]
     Indication: LEUKAEMIA
  4. PREVISCAN [Concomitant]
  5. METFORMIN [Concomitant]
  6. ALPRAZOLAM [Concomitant]
  7. BECLOMETASONE DIPROPIONATE+FORMOTEROL FUMARATE [Concomitant]
  8. MIANSERIN [Concomitant]
  9. TETRALYSAL [Concomitant]
  10. METRONIDAZOLE [Concomitant]

REACTIONS (2)
  - COUGH [None]
  - DEPRESSION [None]
